FAERS Safety Report 6289236-5 (Version None)
Quarter: 2009Q3

REPORT INFORMATION
  Report Type: 
  Country: None (occurrence: None)
  Receive Date: 20090729
  Receipt Date: 20090729
  Transmission Date: 20100115
  Serious: Yes (Other)
  Sender: FDA-Public Use
  Company Number: None

PATIENT
  Age: 60 Year
  Sex: Male
  Weight: 81.6475 kg

DRUGS (2)
  1. DURAGESIC-75 [Suspect]
     Indication: BACK PAIN
     Dosage: ONE NEW PATCH EVERY 9 DAYS 1 PATCH / .48 HRS TRANSDERMAL  1.5 YEARS
     Route: 062
     Dates: start: 20070510, end: 20090710
  2. FENTANYL TRANSDERMAL SYSTEM [Concomitant]

REACTIONS (1)
  - GRAND MAL CONVULSION [None]
